FAERS Safety Report 11714536 (Version 1)
Quarter: 2015Q4

REPORT INFORMATION
  Report Type: Spontaneous
  Country: HR (occurrence: HR)
  Receive Date: 20151109
  Receipt Date: 20151109
  Transmission Date: 20160304
  Serious: Yes (Other)
  Sender: FDA-Public Use
  Company Number: HR-ABBVIE-15K-216-1481421-00

PATIENT
  Sex: Female

DRUGS (9)
  1. HUMIRA [Suspect]
     Active Substance: ADALIMUMAB
     Indication: RHEUMATIC DISORDER
     Route: 058
     Dates: start: 200902, end: 2011
  2. MTX [Concomitant]
     Active Substance: METHOTREXATE SODIUM
     Indication: PRODUCT USED FOR UNKNOWN INDICATION
     Dates: start: 200804
  3. GK [Concomitant]
     Indication: PRODUCT USED FOR UNKNOWN INDICATION
  4. MTX [Concomitant]
     Active Substance: METHOTREXATE SODIUM
     Dates: start: 200807
  5. METHYLPREDNISOLONE. [Concomitant]
     Active Substance: METHYLPREDNISOLONE
  6. MTX [Concomitant]
     Active Substance: METHOTREXATE SODIUM
  7. METHYLPREDNISOLONE. [Concomitant]
     Active Substance: METHYLPREDNISOLONE
     Indication: PRODUCT USED FOR UNKNOWN INDICATION
     Dates: start: 200804
  8. METHYLPREDNISOLONE. [Concomitant]
     Active Substance: METHYLPREDNISOLONE
     Dates: start: 200807
  9. GK [Concomitant]
     Dosage: INCREASED DOSE

REACTIONS (19)
  - Joint effusion [Unknown]
  - Pain [Unknown]
  - Laboratory test abnormal [Unknown]
  - Inflammatory marker increased [Unknown]
  - Pain [Unknown]
  - Hip arthroplasty [Unknown]
  - Hip arthroplasty [Unknown]
  - Leukocyte antigen B-27 positive [Unknown]
  - Red blood cell sedimentation rate increased [Unknown]
  - Condition aggravated [Unknown]
  - Rheumatic disorder [Unknown]
  - Musculoskeletal stiffness [Unknown]
  - Swelling [Unknown]
  - Inflammatory marker increased [Unknown]
  - Laboratory test abnormal [Unknown]
  - Drug ineffective [Unknown]
  - C-reactive protein increased [Unknown]
  - Pain [Unknown]
  - Bursitis [Unknown]

NARRATIVE: CASE EVENT DATE: 2011
